FAERS Safety Report 18401521 (Version 1)
Quarter: 2020Q4

REPORT INFORMATION
  Report Type: Spontaneous
  Country: US (occurrence: US)
  Receive Date: 20201019
  Receipt Date: 20201019
  Transmission Date: 20210114
  Serious: Yes (Death, Other)
  Sender: FDA-Public Use
  Company Number: US-TEVA-2020-US-1838569

PATIENT
  Sex: Male

DRUGS (4)
  1. AMPHETAMINE [Suspect]
     Active Substance: AMPHETAMINE
     Route: 065
  2. FENTANYL. [Suspect]
     Active Substance: FENTANYL
     Route: 065
  3. THC (9-CARBOXY THC) [Suspect]
     Active Substance: DRONABINOL
     Route: 065
  4. XYAZINE [Suspect]
     Active Substance: XYLAZINE
     Route: 065

REACTIONS (2)
  - Death [Fatal]
  - Dependence [Unknown]
